FAERS Safety Report 16909040 (Version 3)
Quarter: 2019Q4

REPORT INFORMATION
  Report Type: Spontaneous
  Country: US (occurrence: US)
  Receive Date: 20191011
  Receipt Date: 20191202
  Transmission Date: 20200122
  Serious: No
  Sender: FDA-Public Use
  Company Number: US-PFIZER INC-2019436362

PATIENT
  Age: 59 Year
  Sex: Female
  Weight: 51.71 kg

DRUGS (3)
  1. PREMARIN [Suspect]
     Active Substance: ESTROGENS, CONJUGATED
     Indication: DYSPAREUNIA
     Dosage: UNK (EVERY DAY FOR 30 DAYS)
  2. PREMARIN [Suspect]
     Active Substance: ESTROGENS, CONJUGATED
     Indication: VULVOVAGINAL DRYNESS
     Dosage: 1 MG, DAILY (1 MG VAGINALLY DAILY FOR 30 DAYS)
     Route: 067
     Dates: start: 201909
  3. PREMARIN [Suspect]
     Active Substance: ESTROGENS, CONJUGATED
     Dosage: UNK

REACTIONS (4)
  - Off label use [Unknown]
  - Poor quality product administered [Unknown]
  - Product quality issue [Unknown]
  - Anxiety [Unknown]

NARRATIVE: CASE EVENT DATE: 201909
